FAERS Safety Report 9409871 (Version 1)
Quarter: 2013Q3

REPORT INFORMATION
  Report Type: Report from Study
  Country: US (occurrence: US)
  Receive Date: 20130719
  Receipt Date: 20130719
  Transmission Date: 20140515
  Serious: Yes (Death)
  Sender: FDA-Public Use
  Company Number: US-ROCHE-1250846

PATIENT
  Sex: Male

DRUGS (5)
  1. AVASTIN [Suspect]
     Indication: PRODUCT USED FOR UNKNOWN INDICATION
     Route: 065
  2. ALOXI [Concomitant]
     Route: 065
  3. DEXAMETHASONE [Concomitant]
     Route: 065
  4. LEUCOVORIN [Concomitant]
     Route: 065
  5. IRINOTECAN HYDROCHLORIDE [Concomitant]
     Route: 065

REACTIONS (4)
  - Death [Fatal]
  - Laboratory test abnormal [Unknown]
  - Blood pressure systolic increased [Unknown]
  - Heart rate increased [Unknown]
